FAERS Safety Report 15617644 (Version 3)
Quarter: 2018Q4

REPORT INFORMATION
  Report Type: Report from Study
  Country: FR (occurrence: FR)
  Receive Date: 20181114
  Receipt Date: 20181126
  Transmission Date: 20190205
  Serious: Yes (Death, Hospitalization)
  Sender: FDA-Public Use
  Company Number: FR-AMGEN-FRACT2018151977

PATIENT
  Age: 71 Year
  Sex: Male

DRUGS (13)
  1. CIFLOX [Concomitant]
     Active Substance: CIPROFLOXACIN
     Indication: ARTHRITIS
     Dosage: UNK
     Route: 048
     Dates: end: 20181004
  2. IXPRIM [Concomitant]
     Active Substance: ACETAMINOPHEN\TRAMADOL HYDROCHLORIDE
     Indication: ABDOMINAL PAIN
     Dosage: UNK
     Route: 048
     Dates: end: 20181009
  3. KARDEGIC [Concomitant]
     Active Substance: ASPIRIN DL-LYSINE
     Indication: ARTERIAL DISORDER
     Dosage: UNK
     Route: 048
     Dates: start: 201705
  4. DEXERYL [Concomitant]
     Indication: PROPHYLAXIS
     Dosage: UNK
     Dates: start: 20180904
  5. 5 FU [Suspect]
     Active Substance: FLUOROURACIL
     Indication: COLORECTAL CANCER METASTATIC
     Dosage: 684.80 MG, UNK
     Route: 040
     Dates: start: 20180904, end: 20181015
  6. PANITUMUMAB [Suspect]
     Active Substance: PANITUMUMAB
     Indication: COLORECTAL CANCER METASTATIC
     Dosage: 432 MG, UNK
     Route: 042
     Dates: start: 20180904, end: 20181015
  7. CALCIUM LEVOFOLINATE [Suspect]
     Active Substance: LEVOLEUCOVORIN CALCIUM
     Indication: COLORECTAL CANCER METASTATIC
     Dosage: 428 MG, UNK
     Route: 042
     Dates: start: 20180904, end: 20181015
  8. 5 FU [Suspect]
     Active Substance: FLUOROURACIL
     Dosage: 684.80 MG, UNK
     Route: 042
     Dates: start: 20180904, end: 20181017
  9. CRESTOR [Concomitant]
     Active Substance: ROSUVASTATIN CALCIUM
     Indication: DYSLIPIDAEMIA
     Dosage: UNK
     Route: 048
     Dates: end: 2016
  10. ELOXATIN [Suspect]
     Active Substance: OXALIPLATIN
     Indication: COLORECTAL CANCER METASTATIC
     Dosage: 181.3 MG, UNK
     Route: 042
     Dates: start: 20180904, end: 20181015
  11. KETUM [Concomitant]
     Active Substance: KETOPROFEN
     Indication: ARTERIAL DISORDER
     Dosage: UNK
     Dates: end: 20181009
  12. KARDEGIC [Concomitant]
     Active Substance: ASPIRIN DL-LYSINE
     Indication: CARDIAC DISORDER
  13. CARDENSIEL [Concomitant]
     Active Substance: BISOPROLOL FUMARATE
     Indication: HYPERTENSION
     Dosage: UNK
     Route: 048
     Dates: start: 2016

REACTIONS (1)
  - Tumour perforation [Fatal]

NARRATIVE: CASE EVENT DATE: 20181024
